FAERS Safety Report 22113593 (Version 4)
Quarter: 2023Q2

REPORT INFORMATION
  Report Type: Spontaneous
  Country: IT (occurrence: IT)
  Receive Date: 20230320
  Receipt Date: 20230410
  Transmission Date: 20230721
  Serious: Yes (Hospitalization, Other)
  Sender: FDA-Public Use
  Company Number: IT-SANOFI-01527485

PATIENT
  Age: 21 Year
  Sex: Female

DRUGS (8)
  1. LEMTRADA [Suspect]
     Active Substance: ALEMTUZUMAB
     Indication: Relapsing-remitting multiple sclerosis
     Dosage: 12 MG, QD
     Route: 041
     Dates: start: 20230307, end: 20230310
  2. LEMTRADA [Suspect]
     Active Substance: ALEMTUZUMAB
     Indication: Multiple sclerosis
  3. ACETAMINOPHEN [Concomitant]
     Active Substance: ACETAMINOPHEN
     Indication: Premedication
     Dosage: UNK
  4. SOLU-MEDROL [Concomitant]
     Active Substance: METHYLPREDNISOLONE SODIUM SUCCINATE
     Indication: Premedication
     Dosage: 500 MG
     Route: 042
  5. PANTOPRAZOLE SODIUM [Concomitant]
     Active Substance: PANTOPRAZOLE SODIUM
     Dosage: 1 DF, QD
  6. ACYCLOVIR [Concomitant]
     Active Substance: ACYCLOVIR
     Dosage: UNK,1 CP X 2 H 8-20 FOR 1 MONTH
  7. LACTIC ACID BACTERIA COMPLEX [Concomitant]
     Dosage: UNK UNK, QW
  8. PREDNISONE [Concomitant]
     Active Substance: PREDNISONE
     Dosage: UNK,25 MG 2 CP H 8 UNTIL 17/03, THEN 1 CP H 8 UNTIL 22/03, THEN 1/2 CP H 8 UNTIL 27/03, THEN 5 MG H
     Dates: start: 202303

REACTIONS (20)
  - Acute respiratory failure [Recovered/Resolved]
  - Early repolarisation syndrome [Recovered/Resolved]
  - Alveolitis [Recovered/Resolved]
  - Cytokine release syndrome [Recovered/Resolved]
  - Neutrophil percentage increased [Unknown]
  - Monocyte percentage decreased [Unknown]
  - Blood glucose increased [Unknown]
  - Fibrin D dimer increased [Unknown]
  - Sinus bradycardia [Recovered/Resolved]
  - Blood pH increased [Unknown]
  - Pneumonia [Recovered/Resolved]
  - Cough [Recovered/Resolved]
  - Dyspnoea [Recovered/Resolved]
  - Breath sounds abnormal [Recovered/Resolved]
  - Hypoxia [Recovered/Resolved]
  - Lung opacity [Recovered/Resolved]
  - Lymphocyte percentage decreased [Unknown]
  - Pulmonary alveolar haemorrhage [Recovering/Resolving]
  - Urticaria [Recovered/Resolved]
  - Pruritus [Recovered/Resolved]

NARRATIVE: CASE EVENT DATE: 20230310
